FAERS Safety Report 10449523 (Version 1)
Quarter: 2014Q3

REPORT INFORMATION
  Report Type: Spontaneous
  Country: IT (occurrence: None)
  Receive Date: 20140910
  Receipt Date: 20140910
  Transmission Date: 20150326
  Serious: Yes (Other)
  Sender: FDA-Public Use
  Company Number: VAL_03369_2014

PATIENT
  Age: 46 Year
  Sex: Male

DRUGS (6)
  1. INVEGA [Suspect]
     Active Substance: PALIPERIDONE
     Indication: PRODUCT USED FOR UNKNOWN INDICATION
     Dosage: (FREQUENCY UNSPECIFIED) ORAL)
     Route: 048
  2. METOPROLOL (METOPROLOL-METOPROLOL TARTRATE) [Suspect]
     Active Substance: METOPROLOL
     Indication: PRODUCT USED FOR UNKNOWN INDICATION
     Dosage: (DF ORAL)
     Route: 048
     Dates: start: 20140430, end: 20140430
  3. LASITONE [Suspect]
     Active Substance: FUROSEMIDE\SPIRONOLACTONE
     Dosage: (DF ORAL )
     Dates: start: 20140430
  4. BROMAZEPAM (BROMAZEPAM) [Suspect]
     Active Substance: BROMAZEPAM
     Indication: PRODUCT USED FOR UNKNOWN INDICATION
     Dosage: (DF ORAL)
     Dates: start: 20140430, end: 20140430
  5. DEPAKIN [Suspect]
     Active Substance: VALPROATE SODIUM
     Indication: PRODUCT USED FOR UNKNOWN INDICATION
     Dosage: (FREQUENCY UNSPECIFIED) ORAL)?
     Route: 048
     Dates: start: 20140430, end: 20140430
  6. CAMPRAL [Suspect]
     Active Substance: ACAMPROSATE CALCIUM
     Indication: PRODUCT USED FOR UNKNOWN INDICATION
     Dosage: (FREQUENCY UNSPECIFIED) ORAL)
     Dates: start: 20140430, end: 20140430

REACTIONS (2)
  - Self injurious behaviour [None]
  - Alcohol use [None]

NARRATIVE: CASE EVENT DATE: 20140430
